FAERS Safety Report 14678067 (Version 1)
Quarter: 2018Q1

REPORT INFORMATION
  Report Type: Spontaneous
  Country: US (occurrence: US)
  Receive Date: 20180326
  Receipt Date: 20180326
  Transmission Date: 20180509
  Serious: Yes (Death, Life-Threatening, Hospitalization)
  Sender: FDA-Public Use
  Company Number: US-SUN PHARMACEUTICAL INDUSTRIES LTD-2018US-161409

PATIENT
  Age: 39 Year
  Sex: Male

DRUGS (6)
  1. PROPRANOLOL [Suspect]
     Active Substance: PROPRANOLOL HYDROCHLORIDE
     Indication: PRODUCT USED FOR UNKNOWN INDICATION
     Dosage: UNK
     Route: 042
  2. PROPYLTHIOURACIL. [Suspect]
     Active Substance: PROPYLTHIOURACIL
     Indication: PRODUCT USED FOR UNKNOWN INDICATION
     Dosage: UNK
     Route: 065
  3. PROPRANOLOL [Suspect]
     Active Substance: PROPRANOLOL HYDROCHLORIDE
     Indication: THYROTOXIC CRISIS
     Dosage: UNK
     Route: 048
  4. HYDROCORTISONE. [Suspect]
     Active Substance: HYDROCORTISONE
     Indication: PRODUCT USED FOR UNKNOWN INDICATION
     Dosage: UNK
     Route: 065
  5. HEPARIN [Suspect]
     Active Substance: HEPARIN SODIUM
     Indication: MYOCARDIAL INFARCTION
     Dosage: UNK
     Route: 042
  6. MILRINONE [Suspect]
     Active Substance: MILRINONE
     Indication: EJECTION FRACTION DECREASED
     Dosage: UNK
     Route: 042

REACTIONS (7)
  - Circulatory collapse [Unknown]
  - Cardiogenic shock [Unknown]
  - Acute hepatic failure [Unknown]
  - Acute kidney injury [Unknown]
  - Respiratory distress [Unknown]
  - Cardiac arrest [Fatal]
  - Renal failure [Unknown]
